FAERS Safety Report 23400581 (Version 2)
Quarter: 2024Q1

REPORT INFORMATION
  Report Type: Other
  Country: US (occurrence: None)
  Receive Date: 20240115
  Receipt Date: 20240303
  Transmission Date: 20240410
  Serious: Yes (Other)
  Sender: FDA-Public Use
  Company Number: US-ROCHE-3489147

PATIENT
  Sex: Male

DRUGS (1)
  1. CELLCEPT [Suspect]
     Active Substance: MYCOPHENOLATE MOFETIL
     Indication: Product used for unknown indication
     Route: 065

REACTIONS (4)
  - Systemic lupus erythematosus [Unknown]
  - Cerebrovascular accident [Unknown]
  - Dysphagia [Unknown]
  - Connective tissue disorder [Unknown]
